FAERS Safety Report 22007392 (Version 3)
Quarter: 2024Q1

REPORT INFORMATION
  Report Type: Report from Study
  Country: PR (occurrence: PR)
  Receive Date: 20230218
  Receipt Date: 20240125
  Transmission Date: 20240409
  Serious: Yes (Other)
  Sender: FDA-Public Use
  Company Number: PR-ABBVIE-4310575

PATIENT
  Sex: Female
  Weight: 72 kg

DRUGS (28)
  1. HUMIRA [Suspect]
     Active Substance: ADALIMUMAB
     Indication: Psoriatic arthropathy
     Dosage: 40MG/0.4ML FORM STRENGTH: 40 MG
     Route: 058
  2. HUMIRA [Suspect]
     Active Substance: ADALIMUMAB
     Indication: Psoriasis
  3. HUMIRA [Suspect]
     Active Substance: ADALIMUMAB
     Indication: Psoriasis
     Route: 058
     Dates: start: 2013
  4. HUMIRA [Suspect]
     Active Substance: ADALIMUMAB
     Indication: Psoriatic arthropathy
  5. PERCOCET [Concomitant]
     Active Substance: ACETAMINOPHEN\OXYCODONE HYDROCHLORIDE
     Indication: Product used for unknown indication
     Dosage: START DATE TEXT: UNKNOWN STOP DATE TEXT: UNKNOWN
  6. VITAMIN D3 [Concomitant]
     Active Substance: CHOLECALCIFEROL
     Indication: Vitamin D deficiency
     Dosage: START DATE TEXT: UNKNOWN
     Route: 048
  7. LAMICTAL [Concomitant]
     Active Substance: LAMOTRIGINE
     Indication: Bipolar disorder
     Dosage: START DATE TEXT: APPROX. MORE THAN 6 YEARS
     Route: 048
  8. VITAMIN B12 [Concomitant]
     Active Substance: CYANOCOBALAMIN
     Indication: Vitamin B12 deficiency
     Route: 048
     Dates: start: 2021
  9. SYNTHROID [Concomitant]
     Active Substance: LEVOTHYROXINE SODIUM
     Indication: Thyroiditis
     Dosage: 112MCG/100MCG  START DATE TEXT: APPROX. MORE THAN 37 YEARS
     Route: 048
  10. FOLIC ACID [Concomitant]
     Active Substance: FOLIC ACID
     Indication: Psoriatic arthropathy
     Route: 048
     Dates: start: 2014
  11. CELEXA [Concomitant]
     Active Substance: CITALOPRAM HYDROBROMIDE
     Indication: Product used for unknown indication
     Dosage: START DATE TEXT: APPROX. MORE THAN 7 YEARS
     Route: 048
  12. BUSPAR [Concomitant]
     Active Substance: BUSPIRONE HYDROCHLORIDE
     Indication: Anxiety
     Dosage: FREQUENCY TEXT: AM?START DATE TEXT: APPROX. MORE THAN 7 YEARS
     Route: 048
  13. BUSPAR [Concomitant]
     Active Substance: BUSPIRONE HYDROCHLORIDE
     Indication: Anxiety
     Dosage: FREQUENCY TEXT: AM?START DATE TEXT: APPROX. MORE THAN 7 YEARS
     Route: 048
  14. NORVASC [Concomitant]
     Active Substance: AMLODIPINE BESYLATE
     Indication: Hypertension
     Dosage: START DATE TEXT: UNKNOWN
     Route: 048
  15. PRILOSEC [Concomitant]
     Active Substance: OMEPRAZOLE MAGNESIUM
     Indication: Gastrooesophageal reflux disease
     Dates: start: 2022
  16. DIOVAN [Concomitant]
     Active Substance: VALSARTAN
     Indication: Hypertension
     Dosage: START DATE TEXT: UNKNOWN
     Route: 048
  17. METFORMIN [Concomitant]
     Active Substance: METFORMIN HYDROCHLORIDE
     Indication: Blood glucose
     Route: 048
     Dates: start: 2022
  18. PREMARIN [Concomitant]
     Active Substance: ESTROGENS, CONJUGATED
     Indication: Menopause
     Route: 048
     Dates: start: 2018
  19. METHOTREXATE [Concomitant]
     Active Substance: METHOTREXATE
     Indication: Psoriatic arthropathy
     Dosage: 50MG-2ML
     Dates: start: 2014
  20. NEURONTIN [Concomitant]
     Active Substance: GABAPENTIN
     Indication: Fibromyalgia
     Dosage: START DATE TEXT: APPROX. MORE THAN 10 YEARS
     Route: 048
  21. SYNTHROID [Concomitant]
     Active Substance: LEVOTHYROXINE SODIUM
     Indication: Thyroid therapy
     Dosage: 112MCG/100MCG  START DATE TEXT: APPROX. MORE THAN 37 YEARS
     Route: 048
  22. STRATTERA [Concomitant]
     Active Substance: ATOMOXETINE HYDROCHLORIDE
     Indication: Attention deficit hyperactivity disorder
     Dosage: START DATE TEXT: APPROX. MORE THAN 15 YEARS
     Route: 048
  23. SINGULAIR [Concomitant]
     Active Substance: MONTELUKAST SODIUM
     Indication: Rhinitis allergic
     Dosage: START DATE TEXT: APPROX. MORE THAN 10 YEARS
     Route: 048
  24. ASPIRIN [Concomitant]
     Active Substance: ASPIRIN
     Indication: Product used for unknown indication
     Dosage: START DATE TEXT: UNKNOWN?STOP DATE TEXT: UNKNOWN
  25. CALAMINE [Concomitant]
     Active Substance: CALAMINE\FERRIC OXIDE RED\ZINC OXIDE
     Indication: Product used for unknown indication
  26. TOZINAMERAN [Concomitant]
     Active Substance: TOZINAMERAN
     Indication: COVID-19 immunisation
     Dosage: 1ST DOSE
     Route: 030
     Dates: start: 20210305, end: 20210305
  27. TOZINAMERAN [Concomitant]
     Active Substance: TOZINAMERAN
     Indication: COVID-19 immunisation
     Dosage: 2ND DOSE
     Route: 030
     Dates: start: 20210409, end: 20210409
  28. TOZINAMERAN [Concomitant]
     Active Substance: TOZINAMERAN
     Indication: COVID-19 immunisation
     Dosage: 3RD DOSE
     Route: 030
     Dates: start: 20210821, end: 20210821

REACTIONS (4)
  - Sleep apnoea syndrome [Not Recovered/Not Resolved]
  - SARS-CoV-2 test positive [Recovered/Resolved]
  - Fatigue [Recovered/Resolved]
  - Pyrexia [Recovered/Resolved]

NARRATIVE: CASE EVENT DATE: 20200101
